FAERS Safety Report 7803484-1 (Version None)
Quarter: 2011Q4

REPORT INFORMATION
  Report Type: 
  Country: None (occurrence: None)
  Receive Date: 20111007
  Receipt Date: 20110923
  Transmission Date: 20120403
  Serious: Yes (Hospitalization)
  Sender: FDA-Public Use
  Company Number: US-ROCHE-773671

PATIENT
  Sex: Male
  Weight: 51 kg

DRUGS (18)
  1. HERCEPTIN [Suspect]
     Indication: GASTROOESOPHAGEAL CANCER
     Route: 065
     Dates: start: 20110315
  2. CITALOPRAM HYDROBROMIDE [Concomitant]
  3. COMPAZINE [Concomitant]
  4. LANSOPRAZOLE [Concomitant]
  5. CALCIUM CARBONATE [Concomitant]
  6. OXALIPLATIN [Suspect]
     Indication: GASTROOESOPHAGEAL CANCER
     Route: 065
     Dates: start: 20110315, end: 20110913
  7. ONDANSETRON HCL [Concomitant]
  8. MIRTAZAPINE [Concomitant]
  9. AVASTIN [Suspect]
     Indication: GASTROOESOPHAGEAL CANCER
     Route: 065
     Dates: start: 20110308
  10. LOMOTIL [Concomitant]
  11. METOCLOPRAMIDE HYDROCHLORIDE [Concomitant]
  12. HERCEPTIN [Suspect]
     Dates: start: 20110426
  13. DEXAMETHASONE [Concomitant]
  14. METOPROLOL TARTRATE [Concomitant]
  15. XELODA [Suspect]
     Indication: GASTROOESOPHAGEAL CANCER
     Route: 065
     Dates: start: 20110315
  16. XELODA [Suspect]
     Dates: end: 20110919
  17. LORAZEPAM [Concomitant]
  18. AVASTIN [Suspect]
     Dates: start: 20110503, end: 20110913

REACTIONS (3)
  - PALMAR ERYTHEMA [None]
  - DIARRHOEA [None]
  - DEHYDRATION [None]
